FAERS Safety Report 14156928 (Version 1)
Quarter: 2017Q4

REPORT INFORMATION
  Report Type: Spontaneous
  Country: US (occurrence: None)
  Receive Date: 20171102
  Receipt Date: 20171102
  Transmission Date: 20180321
  Serious: Yes (Death, Life-Threatening, Other)
  Sender: FDA-Public Use
  Company Number: None

PATIENT
  Age: 30 Year
  Sex: Female
  Weight: 96.16 kg

DRUGS (7)
  1. VITAMIN B12 [Concomitant]
     Active Substance: CYANOCOBALAMIN
  2. OLANZAPINE. [Suspect]
     Active Substance: OLANZAPINE
     Indication: PRODUCT USED FOR UNKNOWN INDICATION
     Route: 048
     Dates: start: 200910, end: 20170911
  3. MULTIVITAMIN [Concomitant]
     Active Substance: VITAMINS
  4. EVENING PRIMROSE OIL [Concomitant]
     Active Substance: EVENING PRIMROSE OIL
  5. GINGKO BILOBA [Concomitant]
     Active Substance: GINKGO
  6. VITAMIN C [Concomitant]
     Active Substance: ASCORBIC ACID
  7. FOLIC ACID. [Concomitant]
     Active Substance: FOLIC ACID

REACTIONS (7)
  - Abnormal behaviour [None]
  - Suicidal ideation [None]
  - Disinhibition [None]
  - Headache [None]
  - Victim of sexual abuse [None]
  - Tardive dyskinesia [None]
  - Memory impairment [None]

NARRATIVE: CASE EVENT DATE: 20170904
